FAERS Safety Report 20082646 (Version 1)
Quarter: 2021Q4

REPORT INFORMATION
  Report Type: Spontaneous
  Country: US (occurrence: None)
  Receive Date: 20211117
  Receipt Date: 20211117
  Transmission Date: 20220303
  Serious: Yes (Other)
  Sender: FDA-Public Use
  Company Number: None

PATIENT
  Age: 15 Year
  Sex: Female

DRUGS (1)
  1. ESCITALOPRAM [Suspect]
     Active Substance: ESCITALOPRAM OXALATE
     Indication: Generalised anxiety disorder
     Dosage: FREQUENCY : DAILY;?
     Route: 048
     Dates: start: 20211115, end: 20211115

REACTIONS (3)
  - Nausea [None]
  - Tremor [None]
  - Tremor [None]

NARRATIVE: CASE EVENT DATE: 20211115
